FAERS Safety Report 24649568 (Version 1)
Quarter: 2024Q4

REPORT INFORMATION
  Report Type: Spontaneous
  Country: US (occurrence: US)
  Receive Date: 20241121
  Receipt Date: 20241121
  Transmission Date: 20250115
  Serious: No
  Sender: BRISTOL-MYERS SQUIBB COMPANY
  Company Number: US-BRISTOL-MYERS SQUIBB COMPANY-2024-178368

PATIENT
  Age: 73 Year
  Sex: Male
  Weight: 72.6 kg

DRUGS (15)
  1. REVLIMID [Suspect]
     Active Substance: LENALIDOMIDE
     Indication: Plasma cell myeloma
     Dosage: TOTAL DAILY DOSE 7.5MG
     Route: 048
     Dates: start: 20240924
  2. REVLIMID [Suspect]
     Active Substance: LENALIDOMIDE
     Dosage: TOTAL DAILY DOSE 7.5MG
     Route: 048
     Dates: start: 20240924
  3. ACETAMINOPHEN [Concomitant]
     Active Substance: ACETAMINOPHEN
  4. ACYCLOVIR [Concomitant]
     Active Substance: ACYCLOVIR
     Indication: Product used for unknown indication
  5. ACRIVASTINE [Concomitant]
     Active Substance: ACRIVASTINE
     Indication: Product used for unknown indication
  6. DARZALEX [Concomitant]
     Active Substance: DARATUMUMAB
  7. DEXAMETHASONE [Concomitant]
     Active Substance: DEXAMETHASONE
  8. FLUOXETINE [Concomitant]
     Active Substance: FLUOXETINE HYDROCHLORIDE
  9. METOPROLOL TARTRATE [Concomitant]
     Active Substance: METOPROLOL TARTRATE
  10. ONDANSETRON [Concomitant]
     Active Substance: ONDANSETRON
  11. POTASSIUM [Concomitant]
     Active Substance: POTASSIUM
  12. PRAVASTATIN [Concomitant]
     Active Substance: PRAVASTATIN
  13. MELATONIN [Concomitant]
     Active Substance: MELATONIN
  14. ASPIRIN [Concomitant]
     Active Substance: ASPIRIN
  15. CALCIUM\VITAMIN D [Concomitant]
     Active Substance: CALCIUM\VITAMIN D

REACTIONS (1)
  - Fatigue [Unknown]
